FAERS Safety Report 25674889 (Version 1)
Quarter: 2025Q3

REPORT INFORMATION
  Report Type: Spontaneous
  Country: EU (occurrence: EU)
  Receive Date: 20250813
  Receipt Date: 20250813
  Transmission Date: 20251021
  Serious: Yes (Other)
  Sender: EMD SERONO INC
  Company Number: EU-Merck Healthcare KGaA-2025040305

PATIENT
  Sex: Female

DRUGS (2)
  1. LEVOTHYROXINE [Suspect]
     Active Substance: LEVOTHYROXINE
     Indication: Post procedural hypothyroidism
  2. CALCIUM [Concomitant]
     Active Substance: CALCIUM
     Indication: Product used for unknown indication

REACTIONS (3)
  - Leukaemia [Unknown]
  - Ear infection [Unknown]
  - Adverse drug reaction [Unknown]
